FAERS Safety Report 19775291 (Version 4)
Quarter: 2021Q3

REPORT INFORMATION
  Report Type: Spontaneous
  Country: GB (occurrence: GB)
  Receive Date: 20210901
  Receipt Date: 20210921
  Transmission Date: 20211014
  Serious: Yes (Hospitalization, Other)
  Sender: FDA-Public Use
  Company Number: GB-MYLANLABS-2021M1056740

PATIENT
  Age: 22 Year
  Sex: Male

DRUGS (1)
  1. CLOZARIL [Suspect]
     Active Substance: CLOZAPINE
     Indication: SCHIZOPHRENIA
     Dosage: UNK
     Route: 048
     Dates: start: 20210729

REACTIONS (6)
  - Sepsis [Unknown]
  - Neuroleptic malignant syndrome [Unknown]
  - Leukocytosis [Unknown]
  - Eosinophilia [Recovering/Resolving]
  - Malaise [Unknown]
  - Hepatitis [Unknown]

NARRATIVE: CASE EVENT DATE: 20210825
